FAERS Safety Report 17691305 (Version 2)
Quarter: 2021Q2

REPORT INFORMATION
  Report Type: Other
  Country: FR (occurrence: FR)
  Receive Date: 20200422
  Receipt Date: 20210513
  Transmission Date: 20210716
  Serious: Yes (Death)
  Sender: FDA-Public Use
  Company Number: FR-CELLTRION INC.-2020FR021729

PATIENT

DRUGS (7)
  1. FLUCONAZOLE. [Concomitant]
     Active Substance: FLUCONAZOLE
     Indication: GASTROINTESTINAL FUNGAL INFECTION
     Dosage: 200 MG, DAILY
     Dates: start: 20200116
  2. KARDEGIC [Concomitant]
     Active Substance: ASPIRIN DL-LYSINE
     Dosage: 75 MG, DAILY
     Dates: start: 20191029
  3. BENDAMUSTINE [Suspect]
     Active Substance: BENDAMUSTINE
     Indication: DIFFUSE LARGE B-CELL LYMPHOMA
     Dosage: 90 MG EVERY 21 DAYS
     Route: 042
     Dates: start: 20200218, end: 20200311
  4. VALACICLOVIR [Concomitant]
     Active Substance: VALACYCLOVIR HYDROCHLORIDE
     Indication: PROPHYLAXIS
     Dosage: 500 MG, QD
     Dates: start: 20180808
  5. ORACILLINE [PHENOXYMETHYLPENICILLIN] [Concomitant]
     Active Substance: PENICILLIN V
     Indication: PROPHYLAXIS
     Dosage: 1000000 IU, QD
     Dates: start: 20190321
  6. RITUXIMAB (UNKNOWN) [Suspect]
     Active Substance: RITUXIMAB
     Indication: DIFFUSE LARGE B-CELL LYMPHOMA
     Dosage: 375 MG EVERY 21 DAYS
     Route: 042
     Dates: start: 20200218, end: 20200311
  7. POLATUZUMAB VEDOTIN. [Suspect]
     Active Substance: POLATUZUMAB VEDOTIN
     Indication: DIFFUSE LARGE B-CELL LYMPHOMA
     Dosage: 1.8 MG/KG EVERY 21 DAYS
     Route: 042
     Dates: start: 20200218, end: 20200311

REACTIONS (3)
  - Underdose [Unknown]
  - Sepsis [Fatal]
  - Death [Fatal]

NARRATIVE: CASE EVENT DATE: 20200330
